FAERS Safety Report 7787664-X (Version None)
Quarter: 2011Q3

REPORT INFORMATION
  Report Type: 
  Country: None (occurrence: None)
  Receive Date: 20110929
  Receipt Date: 20110914
  Transmission Date: 20111222
  Serious: Yes (Other)
  Sender: FDA-Public Use
  Company Number: US-BAYER-2011-086473

PATIENT
  Age: 60 Year
  Sex: Female

DRUGS (5)
  1. HORMONES NOS [Concomitant]
  2. VITAMIN TAB [Concomitant]
  3. FEMHRT [Concomitant]
  4. ALCOHOL [Interacting]
     Dosage: UNK
     Dates: start: 20110804
  5. LEVITRA [Suspect]
     Dosage: UNK
     Dates: start: 20110804

REACTIONS (5)
  - NASAL CONGESTION [None]
  - TINNITUS [None]
  - RHINORRHOEA [None]
  - VISION BLURRED [None]
  - LOSS OF CONSCIOUSNESS [None]
